FAERS Safety Report 16822564 (Version 2)
Quarter: 2019Q4

REPORT INFORMATION
  Report Type: Spontaneous
  Country: US (occurrence: US)
  Receive Date: 20190918
  Receipt Date: 20191023
  Transmission Date: 20200122
  Serious: No
  Sender: FDA-Public Use
  Company Number: US-PFIZER INC-2019402543

PATIENT
  Age: 55 Year
  Sex: Female
  Weight: 109.7 kg

DRUGS (2)
  1. NICORETTE [Concomitant]
     Active Substance: NICOTINE
     Dosage: UNK
     Dates: start: 201901
  2. CHANTIX [Suspect]
     Active Substance: VARENICLINE TARTRATE
     Indication: SMOKING CESSATION THERAPY
     Dosage: UNK
     Dates: start: 201902

REACTIONS (1)
  - Drug ineffective [Recovered/Resolved]

NARRATIVE: CASE EVENT DATE: 201902
